FAERS Safety Report 20410366 (Version 1)
Quarter: 2022Q1

REPORT INFORMATION
  Report Type: Spontaneous
  Country: US (occurrence: None)
  Receive Date: 20220131
  Receipt Date: 20220131
  Transmission Date: 20220423
  Serious: No
  Sender: FDA-Public Use
  Company Number: None

PATIENT
  Age: 75 Year
  Sex: Male
  Weight: 79.38 kg

DRUGS (1)
  1. STELARA [Suspect]
     Active Substance: USTEKINUMAB
     Indication: Psoriasis
     Dosage: FREQUENCY : AS DIRECTED;??INJECT 45MG SUBCUTANEOUSLY AT WEEK 0 AND WEEK 4     AS?DIRECTED.?
     Route: 058
     Dates: start: 202104

REACTIONS (1)
  - Localised infection [None]
